FAERS Safety Report 18325934 (Version 7)
Quarter: 2023Q4

REPORT INFORMATION
  Report Type: Spontaneous
  Country: US (occurrence: US)
  Receive Date: 20200929
  Receipt Date: 20231121
  Transmission Date: 20240110
  Serious: No
  Sender: FDA-Public Use
  Company Number: US-PFIZER INC-2020374963

PATIENT
  Age: 59 Year
  Sex: Female

DRUGS (1)
  1. XELJANZ XR [Suspect]
     Active Substance: TOFACITINIB CITRATE
     Dosage: 11 MG,(30 TAB BOTTLE)

REACTIONS (10)
  - Drug ineffective [Unknown]
  - Arthritis [Unknown]
  - Mobility decreased [Unknown]
  - Loss of personal independence in daily activities [Unknown]
  - Memory impairment [Unknown]
  - Headache [Unknown]
  - Musculoskeletal stiffness [Unknown]
  - Amnesia [Unknown]
  - Pain [Unknown]
  - Malaise [Unknown]
